FAERS Safety Report 4633908-2 (Version None)
Quarter: 2005Q2

REPORT INFORMATION
  Report Type: 
  Country: None (occurrence: None)
  Receive Date: 20050412
  Receipt Date: 20050324
  Transmission Date: 20051028
  Serious: Yes (Other)
  Sender: FDA-Public Use
  Company Number: CIO05005675

PATIENT
  Age: 39 Year
  Sex: Female
  Weight: 72.6 kg

DRUGS (2)
  1. CREST WHITENING EXPRESSION, CINNAMON RUSH FLAVOR (SODIUM FLUORIDE .243 [Suspect]
     Indication: DENTAL CARIES
     Dosage: 1 APPLIC, 1 ONLY FOR 1 DAY, INTRAORAL
     Route: 048
     Dates: start: 20050321, end: 20050321
  2. CREST WHITENING EXPRESSION, CINNAMON RUSH FLAVOR (SODIUM FLUORIDE .243 [Suspect]
     Indication: DENTAL DISORDER PROPHYLAXIS
     Dosage: 1 APPLIC, 1 ONLY FOR 1 DAY, INTRAORAL
     Route: 048
     Dates: start: 20050321, end: 20050321

REACTIONS (6)
  - ANAPHYLACTIC REACTION [None]
  - HYPERSENSITIVITY [None]
  - OROPHARYNGEAL SWELLING [None]
  - PRURITUS [None]
  - SWELLING FACE [None]
  - URTICARIA GENERALISED [None]
